FAERS Safety Report 7307345-6 (Version None)
Quarter: 2011Q1

REPORT INFORMATION
  Report Type: 
  Country: None (occurrence: None)
  Receive Date: 20110223
  Receipt Date: 20110216
  Transmission Date: 20110831
  Serious: Yes (Hospitalization)
  Sender: FDA-Public Use
  Company Number: JP-PFIZER INC-2011033880

PATIENT
  Age: 68 Year
  Sex: Male
  Weight: 36.1 kg

DRUGS (5)
  1. AMBROXOL HYDROCHLORIDE [Concomitant]
  2. VFEND [Suspect]
     Dosage: 150 MG, 1X/DAY
     Route: 048
     Dates: start: 20101104, end: 20110113
  3. MARZULENE S [Concomitant]
  4. MUCODYNE [Concomitant]
  5. VFEND [Suspect]
     Indication: BRONCHOPULMONARY ASPERGILLOSIS
     Dosage: 150 MG, 2X/DAY
     Route: 048
     Dates: start: 20100910, end: 20101021

REACTIONS (5)
  - BLOOD ALKALINE PHOSPHATASE INCREASED [None]
  - BUNDLE BRANCH BLOCK RIGHT [None]
  - BUNDLE BRANCH BLOCK BILATERAL [None]
  - TACHYCARDIA [None]
  - HYPERGLYCAEMIA [None]
